FAERS Safety Report 8138238-2 (Version None)
Quarter: 2012Q1

REPORT INFORMATION
  Report Type: 
  Country: None (occurrence: None)
  Receive Date: 20120215
  Receipt Date: 20110520
  Transmission Date: 20120608
  Serious: No
  Sender: FDA-Public Use
  Company Number: US-SANOFI-AVENTIS-2011SA034743

PATIENT
  Age: 53 Year
  Sex: Male

DRUGS (2)
  1. ACTOS [Suspect]
     Route: 048
     Dates: start: 20110501, end: 20110501
  2. DIABETA [Suspect]
     Route: 065
     Dates: start: 20110501, end: 20110501

REACTIONS (2)
  - ARTHRALGIA [None]
  - WEIGHT INCREASED [None]
